FAERS Safety Report 22182219 (Version 1)
Quarter: 2023Q2

REPORT INFORMATION
  Report Type: Spontaneous
  Country: US (occurrence: None)
  Receive Date: 20230405
  Receipt Date: 20230405
  Transmission Date: 20230721
  Serious: Yes (Life-Threatening, Hospitalization, Disabling, Other)
  Sender: FDA-Public Use
  Company Number: None

PATIENT
  Age: 62 Year
  Sex: Female
  Weight: 95.25 kg

DRUGS (17)
  1. BENLYSTA [Suspect]
     Active Substance: BELIMUMAB
     Indication: Systemic lupus erythematosus
     Dates: start: 20220524, end: 20220706
  2. ASPIRIN [Concomitant]
     Active Substance: ASPIRIN
  3. CIPRO [Concomitant]
     Active Substance: CIPROFLOXACIN HYDROCHLORIDE
  4. ALBUTEROL SULFATE [Concomitant]
     Active Substance: ALBUTEROL SULFATE
  5. NEONYCIN/POLYNYXIN OPTHALMIC [Concomitant]
  6. NEBULIZER/SALINE [Concomitant]
  7. ZYZAL 24 HR [Concomitant]
  8. GABAPENTIN [Concomitant]
     Active Substance: GABAPENTIN
  9. PANTOPRAZOLE [Concomitant]
     Active Substance: PANTOPRAZOLE
  10. PLAQUENIL [Concomitant]
     Active Substance: HYDROXYCHLOROQUINE SULFATE
  11. PANTOPRAZOLE [Concomitant]
     Active Substance: PANTOPRAZOLE
  12. PREGABALIN [Concomitant]
     Active Substance: PREGABALIN
  13. DIETARY SUPPLEMENT [Concomitant]
     Active Substance: DIETARY SUPPLEMENT
  14. VITAMIN D3 [Concomitant]
     Active Substance: CHOLECALCIFEROL
  15. XYZAL 24HR [Concomitant]
  16. ESTER C MULTIVITAMIN [Concomitant]
  17. BROMELAIN VITAMIN [Concomitant]

REACTIONS (27)
  - Infusion related reaction [None]
  - Injection site pain [None]
  - Chest pain [None]
  - Arthralgia [None]
  - Screaming [None]
  - Speech disorder [None]
  - Dysstasia [None]
  - Seizure [None]
  - Cerebrovascular accident [None]
  - Transient ischaemic attack [None]
  - Blood pressure increased [None]
  - Arthralgia [None]
  - Swelling face [None]
  - Throat tightness [None]
  - Anaphylactic reaction [None]
  - Immune system disorder [None]
  - Swelling [None]
  - Erythema [None]
  - Dysphagia [None]
  - Stomatitis [None]
  - Renal pain [None]
  - Visual impairment [None]
  - Cough [None]
  - Chills [None]
  - Insomnia [None]
  - Facial pain [None]
  - Neck pain [None]

NARRATIVE: CASE EVENT DATE: 20220524
